FAERS Safety Report 12255769 (Version 1)
Quarter: 2016Q2

REPORT INFORMATION
  Report Type: Spontaneous
  Country: JP (occurrence: JP)
  Receive Date: 20160412
  Receipt Date: 20160412
  Transmission Date: 20160815
  Serious: Yes (Other)
  Sender: FDA-Public Use
  Company Number: JP-SA-2016SA067765

PATIENT
  Age: 51 Year
  Sex: Female
  Weight: 88 kg

DRUGS (13)
  1. AMARYL [Suspect]
     Active Substance: GLIMEPIRIDE
     Route: 048
     Dates: start: 20090911
  2. PEGVISOMANT [Suspect]
     Active Substance: PEGVISOMANT
     Indication: ACROMEGALY
     Route: 058
     Dates: start: 20080606
  3. SANDOSTATIN LAR DEPOT [Concomitant]
     Active Substance: OCTREOTIDE ACETATE
     Dates: start: 20090617
  4. NOVORAPID [Concomitant]
     Active Substance: INSULIN ASPART
     Dates: start: 20100118
  5. CABASER [Concomitant]
     Active Substance: CABERGOLINE
  6. CORTRIL [Concomitant]
     Active Substance: HYDROCORTISONE
     Dates: start: 20090518
  7. PEGVISOMANT [Suspect]
     Active Substance: PEGVISOMANT
     Indication: ACROMEGALY
     Route: 058
     Dates: start: 20080815, end: 20090911
  8. THYRADIN-S [Concomitant]
     Active Substance: LEVOTHYROXINE
     Dates: start: 20070418
  9. GLYCORAN [Concomitant]
     Active Substance: GLYCERIN
     Dates: start: 20081031
  10. PEGVISOMANT [Suspect]
     Active Substance: PEGVISOMANT
     Indication: ACROMEGALY
     Route: 058
     Dates: start: 20090912
  11. LIVALO [Concomitant]
     Active Substance: PITAVASTATIN CALCIUM
     Dates: start: 20090610
  12. EXCEGRAN [Concomitant]
     Active Substance: ZONISAMIDE
     Dates: start: 20090615, end: 20121130
  13. RENIVACE [Concomitant]
     Active Substance: ENALAPRIL
     Dates: start: 20090911

REACTIONS (1)
  - Loss of consciousness [Recovering/Resolving]

NARRATIVE: CASE EVENT DATE: 201211
